FAERS Safety Report 8780256 (Version 1)
Quarter: 2012Q4

REPORT INFORMATION
  Report Type: Spontaneous
  Country: IT (occurrence: None)
  Receive Date: 20120829
  Receipt Date: 20120829
  Transmission Date: 20130627
  Serious: Yes (Hospitalization, Other)
  Sender: FDA-Public Use
  Company Number: GER/ITL/12/0025475

PATIENT
  Age: 33 Year
  Sex: Male

DRUGS (13)
  1. OLANZAPINE [Suspect]
     Dates: start: 20120713, end: 20120713
  2. ANAFRANIL [Suspect]
     Dates: start: 20120713, end: 20120713
  3. ANAFRANIL [Suspect]
     Dates: start: 20120713, end: 20120713
  4. DEPAKINE [Suspect]
     Dates: start: 20120713, end: 20120713
  5. DEPAKINE [Suspect]
     Dates: start: 20120713, end: 20120713
  6. HALDOL [Suspect]
     Dates: start: 20120713, end: 20120713
  7. HALDOL [Suspect]
     Dates: start: 20120713, end: 20120713
  8. LANTANON [Suspect]
     Dates: start: 20120713, end: 20120713
  9. LANTANON [Suspect]
     Dates: start: 20120713, end: 20120713
  10. RIVOTRIL (CLONAZEPAM) [Suspect]
     Dates: start: 20120713, end: 20120713
  11. RIVOTRIL (CLONAZEPAM) [Suspect]
     Dates: start: 20120713, end: 20120713
  12. TRITTICO [Suspect]
     Dates: start: 20120713, end: 20120713
  13. TRITTICO [Suspect]
     Dates: start: 20120713, end: 20120713

REACTIONS (4)
  - Somnolence [None]
  - Tongue disorder [None]
  - Tachycardia [None]
  - Snoring [None]
